FAERS Safety Report 4664845-5 (Version None)
Quarter: 2005Q2

REPORT INFORMATION
  Report Type: 
  Country: None (occurrence: None)
  Receive Date: 20050517
  Receipt Date: 20050504
  Transmission Date: 20051028
  Serious: Yes (Hospitalization)
  Sender: FDA-Public Use
  Company Number: HQWYE554205MAY05

PATIENT
  Age: 30 Year
  Sex: Male

DRUGS (11)
  1. PANTOPRAZOLE SODIUM [Suspect]
     Indication: COLITIS
     Dosage: 20 MG 1 X PER 1 DAY ORAL
     Route: 048
     Dates: start: 20050326, end: 20050601
  2. PANTOPRAZOLE SODIUM [Suspect]
     Indication: GASTROINTESTINAL INFLAMMATION
     Dosage: 20 MG 1 X PER 1 DAY ORAL
     Route: 048
     Dates: start: 20050326, end: 20050601
  3. BACTRIM DS [Suspect]
     Indication: COLITIS
     Dosage: 1 TIME(S) PER DAY 2 DF  ORAL
     Route: 048
     Dates: start: 20050326, end: 20050401
  4. BACTRIM DS [Suspect]
     Indication: GASTROINTESTINAL INFLAMMATION
     Dosage: 1 TIME(S) PER DAY 2 DF  ORAL
     Route: 048
     Dates: start: 20050326, end: 20050401
  5. TRANSACALM (TRIMEBUTINE MALEATE, ) [Suspect]
     Indication: COLITIS
     Dosage: 200 MG 3X PER 1 DAY ORAL
     Route: 048
     Dates: start: 20050326, end: 20050401
  6. TRANSACALM (TRIMEBUTINE MALEATE, ) [Suspect]
     Indication: GASTROINTESTINAL INFLAMMATION
     Dosage: 200 MG 3X PER 1 DAY ORAL
     Route: 048
     Dates: start: 20050326, end: 20050401
  7. ULTRA LEVURA (YEAST DRIED) [Concomitant]
  8. DILIPRANE (PARACETAMOL) [Concomitant]
  9. PANFUREX (NIFUROXAZIDE) [Concomitant]
  10. CARBOLEVURE (CHARCOAL, ACTIVATED/YEAST DRIED) [Concomitant]
  11. FLIXONASE (FLUTICASONE PROPIONATE) [Concomitant]

REACTIONS (5)
  - PRURIGO [None]
  - PURPURA [None]
  - RASH MACULO-PAPULAR [None]
  - RASH PRURITIC [None]
  - SKIN LESION [None]
